FAERS Safety Report 15367482 (Version 4)
Quarter: 2018Q4

REPORT INFORMATION
  Report Type: Spontaneous
  Country: US (occurrence: US)
  Receive Date: 20180910
  Receipt Date: 20181109
  Transmission Date: 20190204
  Serious: Yes (Death, Hospitalization, Other)
  Sender: FDA-Public Use
  Company Number: US-GILEAD-2018-0361507

PATIENT
  Age: 56 Year
  Sex: Male
  Weight: 54 kg

DRUGS (12)
  1. YESCARTA [Suspect]
     Active Substance: AXICABTAGENE CILOLEUCEL
     Indication: DIFFUSE LARGE B-CELL LYMPHOMA
     Dosage: UNK
     Route: 065
     Dates: start: 20180730, end: 20180730
  2. CIPRO [Concomitant]
     Active Substance: CIPROFLOXACIN HYDROCHLORIDE
  3. PEPCID [FAMOTIDINE] [Concomitant]
  4. ZOVIRAX [ACICLOVIR] [Concomitant]
  5. ZYPREXA [Concomitant]
     Active Substance: OLANZAPINE
  6. MIRALAX [Concomitant]
     Active Substance: POLYETHYLENE GLYCOL 3350
  7. CYCLOPHOSPHAMIDE. [Suspect]
     Active Substance: CYCLOPHOSPHAMIDE
     Indication: BONE MARROW CONDITIONING REGIMEN
     Dosage: UNK UNK, QD
     Route: 065
     Dates: start: 20180725, end: 20180727
  8. NEURONTIN [Concomitant]
     Active Substance: GABAPENTIN
  9. URSODIOL. [Concomitant]
     Active Substance: URSODIOL
  10. ZYLOPRIM [Concomitant]
     Active Substance: ALLOPURINOL
  11. BACTRIM [Concomitant]
     Active Substance: SULFAMETHOXAZOLE\TRIMETHOPRIM
  12. FLUDARABINE [Suspect]
     Active Substance: FLUDARABINE PHOSPHATE
     Indication: BONE MARROW CONDITIONING REGIMEN
     Dosage: UNK UNK, QD
     Route: 065
     Dates: start: 20180725, end: 20180727

REACTIONS (5)
  - Clostridium difficile colitis [Recovered/Resolved]
  - Cytokine release syndrome [Fatal]
  - Viral upper respiratory tract infection [Unknown]
  - Hepatic failure [Fatal]
  - Febrile neutropenia [Unknown]

NARRATIVE: CASE EVENT DATE: 2018
